FAERS Safety Report 4275940-7 (Version None)
Quarter: 2004Q1

REPORT INFORMATION
  Report Type: 
  Country: None (occurrence: None)
  Receive Date: 20040121
  Receipt Date: 20030328
  Transmission Date: 20041129
  Serious: No
  Sender: FDA-Public Use
  Company Number: US-GLAXOSMITHKLINE-A0402427A

PATIENT
  Age: 46 Year
  Sex: Female

DRUGS (2)
  1. VALTREX [Suspect]
     Dosage: 1G UNKNOWN
     Route: 048
     Dates: start: 20030312, end: 20030328
  2. NO CONCURRENT MEDICATIONS [Concomitant]

REACTIONS (2)
  - PYREXIA [None]
  - RASH [None]
